FAERS Safety Report 13918331 (Version 2)
Quarter: 2019Q1

REPORT INFORMATION
  Report Type: Report from Study
  Country: US (occurrence: US)
  Receive Date: 20170829
  Receipt Date: 20190204
  Transmission Date: 20190417
  Serious: Yes (Other)
  Sender: FDA-Public Use
  Company Number: US-SA-2017SA133930

PATIENT
  Age: 37 Year
  Sex: Male

DRUGS (2)
  1. AGALSIDASE BETA [Suspect]
     Active Substance: AGALSIDASE BETA
     Dosage: 105 MG,QOW
     Route: 041
     Dates: start: 2017
  2. AGALSIDASE BETA [Suspect]
     Active Substance: AGALSIDASE BETA
     Indication: FABRY^S DISEASE
     Dosage: 100 MG,QOW
     Route: 041
     Dates: start: 20160913, end: 2017

REACTIONS (5)
  - Blood pressure increased [Unknown]
  - Atrial fibrillation [Not Recovered/Not Resolved]
  - Pyrexia [Unknown]
  - Nasopharyngitis [Unknown]
  - Treatment noncompliance [Unknown]
